FAERS Safety Report 5779248-X (Version None)
Quarter: 2008Q2

REPORT INFORMATION
  Report Type: 
  Country: None (occurrence: None)
  Receive Date: 20080619
  Receipt Date: 20080612
  Transmission Date: 20081010
  Serious: Yes (Hospitalization)
  Sender: FDA-Public Use
  Company Number: US-JNJFOC-20071100973

PATIENT
  Sex: Female
  Weight: 74.84 kg

DRUGS (8)
  1. ORTHO EVRA [Suspect]
     Indication: CONTRACEPTION
     Route: 062
  2. XANAX [Concomitant]
  3. HUMALOG [Concomitant]
  4. LANTUS [Concomitant]
  5. HYDROCODONE [Concomitant]
  6. ZANAFLEX [Concomitant]
  7. METANEX [Concomitant]
  8. REGLAN [Concomitant]

REACTIONS (1)
  - DEEP VEIN THROMBOSIS [None]
